FAERS Safety Report 5774083-0 (Version None)
Quarter: 2008Q2

REPORT INFORMATION
  Report Type: 
  Country: None (occurrence: None)
  Receive Date: 20080616
  Receipt Date: 20080605
  Transmission Date: 20081010
  Serious: Yes (Hospitalization)
  Sender: FDA-Public Use
  Company Number: JP-MERCK-0806USA01774

PATIENT
  Age: 81 Year
  Sex: Female

DRUGS (6)
  1. STROMECTOL [Suspect]
     Indication: ACARODERMATITIS
     Route: 048
     Dates: start: 20080530, end: 20080530
  2. NORVASC [Concomitant]
     Route: 048
     Dates: start: 20080130, end: 20080605
  3. BUFFERIN [Concomitant]
     Route: 048
     Dates: start: 20080130, end: 20080605
  4. BIOFERMIN [Concomitant]
     Route: 048
     Dates: start: 20080130, end: 20080605
  5. FAMOTIDINE [Concomitant]
     Route: 048
     Dates: start: 20080130, end: 20080605
  6. TRIAZOLAM [Concomitant]
     Route: 048
     Dates: start: 20080130

REACTIONS (2)
  - JAUNDICE [None]
  - LABORATORY TEST ABNORMAL [None]
